FAERS Safety Report 14677536 (Version 1)
Quarter: 2018Q1

REPORT INFORMATION
  Report Type: Spontaneous
  Country: US (occurrence: US)
  Receive Date: 20180324
  Receipt Date: 20180324
  Transmission Date: 20180509
  Serious: No
  Sender: FDA-Public Use
  Company Number: None

PATIENT
  Age: 80 Year
  Sex: Male

DRUGS (1)
  1. REVLIMID [Suspect]
     Active Substance: LENALIDOMIDE
     Indication: DIFFUSE LARGE B-CELL LYMPHOMA
     Dosage: 20MG DAILY X 21D/28D ORAL
     Route: 048
     Dates: start: 20180322

REACTIONS (1)
  - Diffuse large B-cell lymphoma recurrent [None]

NARRATIVE: CASE EVENT DATE: 20180322
